FAERS Safety Report 17354409 (Version 1)
Quarter: 2020Q1

REPORT INFORMATION
  Report Type: Spontaneous
  Country: US (occurrence: US)
  Receive Date: 20200130
  Receipt Date: 20200130
  Transmission Date: 20200409
  Serious: Yes (Disabling)
  Sender: FDA-Public Use
  Company Number: None

PATIENT
  Age: 43 Year
  Sex: Male
  Weight: 69.75 kg

DRUGS (2)
  1. HALDOL [Suspect]
     Active Substance: HALOPERIDOL
     Indication: SCHIZOPHRENIA
     Dates: start: 20171130, end: 20190101
  2. HALDOL [Suspect]
     Active Substance: HALOPERIDOL
     Indication: MANIA
     Dates: start: 20171130, end: 20190101

REACTIONS (6)
  - Constipation [None]
  - Lethargy [None]
  - Decreased activity [None]
  - Hypotension [None]
  - Feeling abnormal [None]
  - Akathisia [None]

NARRATIVE: CASE EVENT DATE: 20171231
